FAERS Safety Report 7953551-7 (Version None)
Quarter: 2011Q4

REPORT INFORMATION
  Report Type: 
  Country: None (occurrence: None)
  Receive Date: 20111202
  Receipt Date: 20111128
  Transmission Date: 20120403
  Serious: Yes (Hospitalization)
  Sender: FDA-Public Use
  Company Number: FR-PFIZER INC-2011289125

PATIENT
  Age: 90 Year
  Sex: Female

DRUGS (8)
  1. FOSINOPRIL SODIUM AND HYDROCHLOROTHIAZIDE [Interacting]
     Indication: HYPERTENSION
     Dosage: 1 DF, 1X/DAY
     Route: 048
     Dates: end: 20110919
  2. LERCANIDIPINE [Concomitant]
     Indication: HYPERTENSION
     Dosage: 10 MG, 1X/DAY
     Route: 048
  3. LEVOTHYROXINE [Concomitant]
     Indication: HYPOTHYROIDISM
     Dosage: 20 GTT, 1X/DAY
     Route: 048
  4. FOSAMAX [Concomitant]
     Indication: OSTEOPOROSIS
     Dosage: 1 DF, WEEKLY
     Route: 048
     Dates: end: 20110919
  5. ZOLPIDEM [Concomitant]
     Indication: INSOMNIA
     Dosage: 1 DF, 1X/DAY
     Route: 048
  6. IBUPROFEN (ADVIL) [Suspect]
     Indication: PAIN
     Dosage: 400 MG, AS NEEDED
     Route: 048
     Dates: end: 20110919
  7. ACETAMINOPHEN [Concomitant]
     Indication: PAIN
     Dosage: 1 DF, 1X/DAY
     Route: 048
     Dates: end: 20110919
  8. ASPIRIN [Interacting]
     Indication: PROPHYLAXIS
     Dosage: 160 MG, 1X/DAY
     Route: 048

REACTIONS (3)
  - DIARRHOEA [None]
  - DRUG INTERACTION [None]
  - RENAL FAILURE ACUTE [None]
